FAERS Safety Report 5397609-8 (Version None)
Quarter: 2007Q3

REPORT INFORMATION
  Report Type: 
  Country: None (occurrence: None)
  Receive Date: 20070726
  Receipt Date: 20070717
  Transmission Date: 20080115
  Serious: Yes (Other)
  Sender: FDA-Public Use
  Company Number: IT-ROCHE-507284

PATIENT
  Age: 54 Year
  Sex: Male
  Weight: 58.5 kg

DRUGS (3)
  1. PEG-INTERFERON ALFA 2A (RO 25-8310) [Suspect]
     Dosage: FORM: PRE FILLED SYRINGE.
     Route: 030
     Dates: start: 20050616, end: 20070509
  2. LAMIVUDINE [Suspect]
     Route: 048
     Dates: start: 20050616
  3. SELES BETA [Concomitant]
     Dates: start: 20060211

REACTIONS (1)
  - GUILLAIN-BARRE SYNDROME [None]
